FAERS Safety Report 10762846 (Version 1)
Quarter: 2015Q1

REPORT INFORMATION
  Report Type: Spontaneous
  Country: GR (occurrence: GR)
  Receive Date: 20150204
  Receipt Date: 20150204
  Transmission Date: 20150721
  Serious: Yes (Other)
  Sender: FDA-Public Use
  Company Number: PHHY2015GR012893

PATIENT
  Sex: Female

DRUGS (2)
  1. IMATINIB [Suspect]
     Active Substance: IMATINIB
     Indication: CHRONIC MYELOID LEUKAEMIA
     Dosage: 400 MG, UNK
     Route: 065
     Dates: start: 200708, end: 200903
  2. IMATINIB [Suspect]
     Active Substance: IMATINIB
     Dosage: 600 MG, UNK
     Route: 065
     Dates: start: 200903

REACTIONS (3)
  - Myelodysplastic syndrome [Unknown]
  - Gene mutation [Unknown]
  - Blast crisis in myelogenous leukaemia [Unknown]
